FAERS Safety Report 6738091-5 (Version None)
Quarter: 2010Q2

REPORT INFORMATION
  Report Type: 
  Country: None (occurrence: None)
  Receive Date: 20100520
  Receipt Date: 20100512
  Transmission Date: 20101027
  Serious: Yes (Hospitalization)
  Sender: FDA-Public Use
  Company Number: 007471

PATIENT
  Sex: Female
  Weight: 93.1 kg

DRUGS (6)
  1. CERTOLIZUMAB PEGOL (CERTOLIZUMAB PEGOL) [Suspect]
     Indication: CROHN'S DISEASE
     Dosage: (400 MG 1X/2 WEEKS SUBCUTANEOUS), (400 MG 1X/MONTH, CDP870-32 SUBCUTANEOUS), (400 MG 1X/MONTH SC)
     Route: 058
     Dates: start: 20041220, end: 20050413
  2. CERTOLIZUMAB PEGOL (CERTOLIZUMAB PEGOL) [Suspect]
     Indication: CROHN'S DISEASE
     Dosage: (400 MG 1X/2 WEEKS SUBCUTANEOUS), (400 MG 1X/MONTH, CDP870-32 SUBCUTANEOUS), (400 MG 1X/MONTH SC)
     Route: 058
     Dates: start: 20041025, end: 20051125
  3. CERTOLIZUMAB PEGOL (CERTOLIZUMAB PEGOL) [Suspect]
     Indication: CROHN'S DISEASE
     Dosage: (400 MG 1X/2 WEEKS SUBCUTANEOUS), (400 MG 1X/MONTH, CDP870-32 SUBCUTANEOUS), (400 MG 1X/MONTH SC)
     Route: 058
     Dates: start: 20050428
  4. IZOFRAN /00955301/ [Concomitant]
  5. BUSCOPAN /00008702/ [Concomitant]
  6. VALOID /00014901/ [Concomitant]

REACTIONS (1)
  - GASTROENTERITIS [None]
